FAERS Safety Report 6612196-1 (Version None)
Quarter: 2010Q1

REPORT INFORMATION
  Report Type: 
  Country: None (occurrence: None)
  Receive Date: 20100302
  Receipt Date: 20100302
  Transmission Date: 20100710
  Serious: Yes (Other)
  Sender: FDA-Public Use
  Company Number: None

PATIENT
  Age: 54 Year
  Sex: Male
  Weight: 88.4514 kg

DRUGS (2)
  1. PREDNISONE [Suspect]
     Indication: DERMATITIS CONTACT
     Dosage: 3 EACH 1/DAY FOR 4 DAYS PO
     Route: 048
     Dates: start: 20100219, end: 20100222
  2. PREDNISONE [Suspect]
     Dosage: 2 EACH 1/DAY FOR 3 DAYS PO
     Route: 048
     Dates: start: 20100223, end: 20100224

REACTIONS (10)
  - ABNORMAL BEHAVIOUR [None]
  - CONFUSIONAL STATE [None]
  - DIZZINESS [None]
  - FATIGUE [None]
  - HEADACHE [None]
  - HUNGER [None]
  - INSOMNIA [None]
  - PAIN IN EXTREMITY [None]
  - THINKING ABNORMAL [None]
  - THIRST [None]
